FAERS Safety Report 5772815-9 (Version None)
Quarter: 2008Q2

REPORT INFORMATION
  Report Type: 
  Country: None (occurrence: None)
  Receive Date: 20080613
  Receipt Date: 20080603
  Transmission Date: 20081010
  Serious: Yes (Other)
  Sender: FDA-Public Use
  Company Number: US-PFIZER INC-2008021563

PATIENT
  Sex: Female

DRUGS (2)
  1. CHANTIX [Suspect]
     Indication: EX-SMOKER
     Route: 048
     Dates: start: 20080122, end: 20080304
  2. TRAZODONE HCL [Concomitant]
     Route: 048

REACTIONS (9)
  - DIZZINESS [None]
  - DYSPEPSIA [None]
  - FATIGUE [None]
  - FIBROMYALGIA [None]
  - FLATULENCE [None]
  - HEADACHE [None]
  - MALAISE [None]
  - MUTISM [None]
  - VOMITING [None]
